FAERS Safety Report 6352949-0 (Version None)
Quarter: 2009Q3

REPORT INFORMATION
  Report Type: 
  Country: None (occurrence: None)
  Receive Date: 20090912
  Receipt Date: 20090622
  Transmission Date: 20100115
  Serious: No
  Sender: FDA-Public Use
  Company Number: US-ABBOTT-08P-163-0449156-00

PATIENT
  Weight: 62.652 kg

DRUGS (4)
  1. HUMIRA [Suspect]
     Indication: PSORIATIC ARTHROPATHY
     Route: 058
     Dates: start: 20080425
  2. LORATADINE [Concomitant]
     Indication: ASTHMA
     Route: 048
     Dates: start: 19980101
  3. ZAFIRLUKAST [Concomitant]
     Indication: ASTHMA
     Route: 048
     Dates: start: 20060101
  4. SALBUTAMOL SULFATE [Concomitant]
     Indication: ASTHMA
     Route: 055
     Dates: start: 20070101

REACTIONS (4)
  - ASTHENIA [None]
  - DIZZINESS [None]
  - INCORRECT DOSE ADMINISTERED [None]
  - SYNCOPE [None]
